FAERS Safety Report 12078802 (Version 1)
Quarter: 2016Q1

REPORT INFORMATION
  Report Type: Spontaneous
  Country: GB (occurrence: GB)
  Receive Date: 20160216
  Receipt Date: 20160216
  Transmission Date: 20160526
  Serious: Yes (Hospitalization)
  Sender: FDA-Public Use
  Company Number: GB-009507513-1602GBR007204

PATIENT
  Age: 44 Year
  Sex: Female
  Weight: 76.2 kg

DRUGS (2)
  1. QUETIAPINE FUMARATE. [Suspect]
     Active Substance: QUETIAPINE FUMARATE
     Indication: PROPHYLAXIS
     Dates: start: 20160121, end: 20160124
  2. MIRTAZAPINE. [Suspect]
     Active Substance: MIRTAZAPINE
     Indication: ANXIETY

REACTIONS (8)
  - Hypertension [Unknown]
  - Tachycardia [Unknown]
  - Oedema [Not Recovered/Not Resolved]
  - Nausea [Unknown]
  - Dyspnoea [Unknown]
  - Angina pectoris [Unknown]
  - Renal pain [Unknown]
  - Malaise [Not Recovered/Not Resolved]
